FAERS Safety Report 12094097 (Version 2)
Quarter: 2016Q2

REPORT INFORMATION
  Report Type: Spontaneous
  Country: DE (occurrence: DE)
  Receive Date: 20160219
  Receipt Date: 20160408
  Transmission Date: 20160815
  Serious: Yes (Hospitalization, Other)
  Sender: FDA-Public Use
  Company Number: DE-ACTELION-A-CH2015-116138

PATIENT
  Age: 29 Year
  Sex: Female
  Weight: 55.3 kg

DRUGS (10)
  1. VENTAVIS [Suspect]
     Active Substance: ILOPROST
     Indication: PULMONARY ARTERIAL HYPERTENSION
     Dosage: UNK
     Route: 055
     Dates: end: 201505
  2. PREDNISOLONE. [Concomitant]
     Active Substance: PREDNISOLONE
  3. AZATHIOPRIN [Suspect]
     Active Substance: AZATHIOPRINE
     Indication: SYSTEMIC LUPUS ERYTHEMATOSUS
     Dosage: 50 UNK, QD
     Route: 048
  4. TREPROSTINIL [Concomitant]
     Active Substance: TREPROSTINIL
     Dosage: UNK
     Dates: start: 20150727, end: 20150907
  5. APIXABAN [Suspect]
     Active Substance: APIXABAN
     Indication: PRODUCT USED FOR UNKNOWN INDICATION
     Route: 065
  6. INNOHEP [Concomitant]
     Active Substance: TINZAPARIN SODIUM
     Dosage: 10000 IU, OD
     Dates: start: 20150408, end: 201510
  7. OPSUMIT [Suspect]
     Active Substance: MACITENTAN
     Indication: PULMONARY ARTERIAL HYPERTENSION
     Dosage: 10 MG, QD
     Route: 048
     Dates: start: 20141124, end: 20150323
  8. INNOHEP [Concomitant]
     Active Substance: TINZAPARIN SODIUM
     Dosage: 20000 IU, OD
     Dates: start: 201510
  9. SILDENAFIL. [Suspect]
     Active Substance: SILDENAFIL
     Indication: PULMONARY ARTERIAL HYPERTENSION
     Dosage: 20 MG, TID
     Route: 048
     Dates: start: 20150105, end: 20150323
  10. HYDROXYCHLOROQUINE [Concomitant]
     Active Substance: HYDROXYCHLOROQUINE

REACTIONS (16)
  - Gastroenteritis norovirus [Recovered/Resolved]
  - Paraesthesia [Unknown]
  - Uterine dilation and curettage [Unknown]
  - Syncope [Recovered/Resolved]
  - Gestational diabetes [Unknown]
  - Premature rupture of membranes [Recovered/Resolved]
  - Vaginal haemorrhage [Recovered/Resolved]
  - Cervical incompetence [Recovered/Resolved]
  - Premature labour [Recovered/Resolved]
  - Uterine haematoma [Recovered/Resolved]
  - Cholestasis of pregnancy [Unknown]
  - Pruritus [Unknown]
  - Drug intolerance [Unknown]
  - Caesarean section [Unknown]
  - Pregnancy [Not Recovered/Not Resolved]
  - Premature delivery [Recovered/Resolved]

NARRATIVE: CASE EVENT DATE: 2015
